FAERS Safety Report 4977055-9 (Version None)
Quarter: 2006Q2

REPORT INFORMATION
  Report Type: 
  Country: None (occurrence: None)
  Receive Date: 20060412
  Receipt Date: 20060329
  Transmission Date: 20061013
  Serious: Yes (Hospitalization)
  Sender: FDA-Public Use
  Company Number: 200611255BWH

PATIENT
  Age: 73 Year
  Sex: Female
  Weight: 53.5244 kg

DRUGS (7)
  1. NEXAVAR [Suspect]
     Indication: METASTASES TO LYMPH NODES
     Dosage: 400; 200 MG, BID, ORAL
     Dates: start: 20060202, end: 20060302
  2. NEXAVAR [Suspect]
     Indication: RENAL CELL CARCINOMA STAGE UNSPECIFIED
     Dosage: 400; 200 MG, BID, ORAL
     Dates: start: 20060202, end: 20060302
  3. NEXAVAR [Suspect]
     Indication: METASTASES TO LYMPH NODES
     Dosage: 400; 200 MG, BID, ORAL
     Dates: start: 20060328
  4. NEXAVAR [Suspect]
     Indication: RENAL CELL CARCINOMA STAGE UNSPECIFIED
     Dosage: 400; 200 MG, BID, ORAL
     Dates: start: 20060328
  5. SANDOSTATIN [Concomitant]
  6. ACTONEL [Concomitant]
  7. OSCAL [Concomitant]

REACTIONS (13)
  - BLOOD GLUCOSE INCREASED [None]
  - BLOOD PRESSURE INCREASED [None]
  - DEHYDRATION [None]
  - DIARRHOEA [None]
  - EPISTAXIS [None]
  - MUCOSAL INFLAMMATION [None]
  - ONYCHALGIA [None]
  - PAIN IN EXTREMITY [None]
  - RASH GENERALISED [None]
  - SKIN EXFOLIATION [None]
  - STEVENS-JOHNSON SYNDROME [None]
  - STOMATITIS [None]
  - WEIGHT DECREASED [None]
